FAERS Safety Report 11999813 (Version 1)
Quarter: 2016Q1

REPORT INFORMATION
  Report Type: Spontaneous
  Country: CZ (occurrence: CZ)
  Receive Date: 20160204
  Receipt Date: 20160204
  Transmission Date: 20160526
  Serious: Yes (Other)
  Sender: FDA-Public Use
  Company Number: CZ-TEVA-630670USA

PATIENT
  Age: 18 Year
  Sex: Female

DRUGS (1)
  1. POSTINOR-2 [Suspect]
     Active Substance: LEVONORGESTREL
     Indication: POST COITAL CONTRACEPTION
     Route: 065

REACTIONS (3)
  - Menstruation irregular [Unknown]
  - Dysuria [Unknown]
  - Haemorrhage [Unknown]
